FAERS Safety Report 5758016-9 (Version None)
Quarter: 2008Q2

REPORT INFORMATION
  Report Type: 
  Country: None (occurrence: None)
  Receive Date: 20080530
  Receipt Date: 20080515
  Transmission Date: 20081010
  Serious: Yes (Other)
  Sender: FDA-Public Use
  Company Number: 2008AL005302

PATIENT
  Age: 75 Year
  Sex: Female

DRUGS (1)
  1. DIGOXIN [Suspect]
     Dates: start: 20060126

REACTIONS (4)
  - CARDIAC FAILURE [None]
  - MALAISE [None]
  - RENAL FAILURE [None]
  - TOXIC SHOCK SYNDROME [None]
